FAERS Safety Report 24055637 (Version 1)
Quarter: 2024Q3

REPORT INFORMATION
  Report Type: Spontaneous
  Country: US (occurrence: None)
  Receive Date: 20240703
  Receipt Date: 20240703
  Transmission Date: 20241017
  Serious: Yes (Other)
  Sender: Public
  Company Number: None

PATIENT
  Age: 76 Year
  Sex: Female
  Weight: 66.6 kg

DRUGS (13)
  1. CHLORHEXIDINE GLUCONATE [Suspect]
     Active Substance: CHLORHEXIDINE GLUCONATE
     Indication: Preoperative care
     Dosage: OTHER QUANTITY : 6 6 DISPOSABLE WIPES;?OTHER FREQUENCY : ONE TIME USE ONLY;?
     Route: 061
     Dates: start: 20240701, end: 20240701
  2. ALLOPURINOL [Concomitant]
     Active Substance: ALLOPURINOL
  3. AMIODIPINE BESYLATE [Concomitant]
  4. ATORVASTATIN [Concomitant]
     Active Substance: ATORVASTATIN
  5. FLUTICASONE [Concomitant]
     Active Substance: FLUTICASONE
  6. LEVOTHYROXINE [Concomitant]
     Active Substance: LEVOTHYROXINE\LEVOTHYROXINE SODIUM
  7. LOSARTAN [Concomitant]
     Active Substance: LOSARTAN
  8. ESTRADIOL .01% CREAM [Concomitant]
  9. TRIAMCINOLONE .1% OINTMENT [Concomitant]
  10. DOCUSATE SODIUM [Concomitant]
     Active Substance: DOCUSATE SODIUM
  11. CLARITIN [Concomitant]
     Active Substance: LORATADINE
  12. TYLENOL EX [Concomitant]
  13. CLOTRIMAZONE CREAM 1% [Concomitant]

REACTIONS (4)
  - Arthropod sting [None]
  - Hypoaesthesia oral [None]
  - Flushing [None]
  - Application site reaction [None]

NARRATIVE: CASE EVENT DATE: 20240701
